FAERS Safety Report 5800542-8 (Version None)
Quarter: 2008Q3

REPORT INFORMATION
  Report Type: 
  Country: None (occurrence: None)
  Receive Date: 20080703
  Receipt Date: 20080626
  Transmission Date: 20090109
  Serious: Yes (Death)
  Sender: FDA-Public Use
  Company Number: US-PFIZER INC-2008021392

PATIENT
  Sex: Female
  Weight: 7 kg

DRUGS (1)
  1. GENOTROPIN [Suspect]
     Indication: BODY HEIGHT BELOW NORMAL
     Dosage: TEXT:0.3 MG / 0.4 MG-FREQ:DAILY
     Route: 058

REACTIONS (2)
  - BRAIN NEOPLASM MALIGNANT [None]
  - RESPIRATORY ARREST [None]
